FAERS Safety Report 18557646 (Version 2)
Quarter: 2021Q1

REPORT INFORMATION
  Report Type: Spontaneous
  Country: TN (occurrence: DZ)
  Receive Date: 20201130
  Receipt Date: 20210108
  Transmission Date: 20210419
  Serious: Yes (Other)
  Sender: FDA-Public Use
  Company Number: TN-AMGEN-DZASP2020190957

PATIENT
  Age: 50 Year
  Sex: Male

DRUGS (4)
  1. XGEVA [Suspect]
     Active Substance: DENOSUMAB
     Indication: METASTASES TO BONE
     Dosage: UNK
     Route: 065
  2. GEMCITABINE. [Concomitant]
     Active Substance: GEMCITABINE
     Dosage: UNK
  3. ZOLEDRONATE [Concomitant]
     Active Substance: ZOLEDRONIC ACID
     Dosage: UNK
     Dates: start: 201611
  4. DOCETAXEL. [Concomitant]
     Active Substance: DOCETAXEL
     Dosage: UNK

REACTIONS (5)
  - Oedema peripheral [Unknown]
  - Pericarditis [Unknown]
  - Ascites [Unknown]
  - Polyserositis [Unknown]
  - Pleurisy [Unknown]

NARRATIVE: CASE EVENT DATE: 20200826
